FAERS Safety Report 9471703 (Version 4)
Quarter: 2014Q1

REPORT INFORMATION
  Report Type: Spontaneous
  Country: GB (occurrence: None)
  Receive Date: 20130819
  Receipt Date: 20140127
  Transmission Date: 20141002
  Serious: Yes (Hospitalization)
  Sender: FDA-Public Use
  Company Number: AUR-APL-2013-06646

PATIENT
  Age: 79 Year
  Sex: Female

DRUGS (6)
  1. BISOPROLOL [Suspect]
     Indication: PRODUCT USED FOR UNKNOWN INDICATION
  2. RAMIPRIL [Suspect]
     Indication: PRODUCT USED FOR UNKNOWN INDICATION
     Route: 048
  3. ATENOLOL (ATENOLOL) [Concomitant]
  4. SIMVASTATIN (SIMVASTATIN) [Concomitant]
  5. TAMOXIFEN [Concomitant]
  6. ASA (ACETYLSALICYLIC ACID) [Concomitant]

REACTIONS (8)
  - Circulatory collapse [None]
  - Fall [None]
  - Vomiting [None]
  - Fracture [None]
  - Dizziness [None]
  - Hypotension [None]
  - Hand fracture [None]
  - Food poisoning [None]
